FAERS Safety Report 17654435 (Version 2)
Quarter: 2020Q3

REPORT INFORMATION
  Report Type: Spontaneous
  Country: GB (occurrence: GB)
  Receive Date: 20200410
  Receipt Date: 20200710
  Transmission Date: 20201102
  Serious: Yes (Life-Threatening, Other)
  Sender: FDA-Public Use
  Company Number: GB-DRREDDYS-USA/UKI/20/0121748

PATIENT
  Age: 24 Year
  Sex: Male

DRUGS (2)
  1. IBUPROFEN. [Suspect]
     Active Substance: IBUPROFEN
     Indication: ANALGESIC THERAPY
     Route: 065
  2. CODEINE [Concomitant]
     Active Substance: CODEINE
     Indication: ANALGESIC THERAPY

REACTIONS (2)
  - Condition aggravated [Unknown]
  - Hereditary angioedema [Unknown]
